FAERS Safety Report 4965710-6 (Version None)
Quarter: 2006Q1

REPORT INFORMATION
  Report Type: 
  Country: None (occurrence: None)
  Receive Date: 20060331
  Receipt Date: 20060320
  Transmission Date: 20060701
  Serious: Yes (Other)
  Sender: FDA-Public Use
  Company Number: GB200603005224

PATIENT
  Age: 11 Year
  Sex: Male
  Weight: 31.5 kg

DRUGS (2)
  1. STRATTERA [Suspect]
     Indication: ATTENTION DEFICIT/HYPERACTIVITY DISORDER
     Dosage: 36 MG, DAILY (1/D), ORAL
     Route: 048
     Dates: start: 20060113, end: 20060125
  2. CONCERTA [Concomitant]

REACTIONS (2)
  - BLISTER [None]
  - RASH ERYTHEMATOUS [None]
